FAERS Safety Report 9565118 (Version 1)
Quarter: 2013Q3

REPORT INFORMATION
  Report Type: Spontaneous
  Country: FR (occurrence: FR)
  Receive Date: 20130930
  Receipt Date: 20130930
  Transmission Date: 20140515
  Serious: Yes (Death, Congenital Anomaly)
  Sender: FDA-Public Use
  Company Number: FR-PFIZER INC-2013277913

PATIENT
  Sex: Male

DRUGS (3)
  1. XANAX [Suspect]
     Indication: ANXIETY
     Dosage: 0.5 MG, 2X/DAY
     Route: 064
  2. BISOPROLOL FUMARATE [Suspect]
     Indication: HYPERTENSION
     Dosage: 1 DF, DAILY
     Route: 064
  3. PAROXETINE [Suspect]
     Indication: DEPRESSION
     Dosage: 20 MG, DAILY
     Route: 064

REACTIONS (2)
  - Maternal exposure timing unspecified [Fatal]
  - Arnold-Chiari malformation [Fatal]
